FAERS Safety Report 17875010 (Version 2)
Quarter: 2020Q2

REPORT INFORMATION
  Report Type: Spontaneous
  Country: US (occurrence: US)
  Receive Date: 20200609
  Receipt Date: 20200611
  Transmission Date: 20200714
  Serious: No
  Sender: FDA-Public Use
  Company Number: US-PFIZER INC-2020224074

PATIENT
  Age: 64 Year
  Sex: Female

DRUGS (1)
  1. IBRANCE [Suspect]
     Active Substance: PALBOCICLIB
     Dosage: 125 MG
     Dates: start: 20200521

REACTIONS (5)
  - Epistaxis [Unknown]
  - Glossodynia [Unknown]
  - Alopecia [Unknown]
  - Rhinorrhoea [Unknown]
  - Diarrhoea [Unknown]
